FAERS Safety Report 5698340-1 (Version None)
Quarter: 2008Q2

REPORT INFORMATION
  Report Type: 
  Country: None (occurrence: None)
  Receive Date: 20080403
  Receipt Date: 20080328
  Transmission Date: 20081010
  Serious: Yes (Other)
  Sender: FDA-Public Use
  Company Number: 2008TJ0061

PATIENT
  Age: 38 Year
  Sex: Female

DRUGS (1)
  1. TWINJECT (EPINEPHRINE) 0.3 MG [Suspect]
     Indication: ANAPHYLACTIC REACTION
     Dosage: SUBCUTANEOUS/INTRAMUSCULAR
     Route: 058

REACTIONS (1)
  - DEVICE FAILURE [None]
